FAERS Safety Report 17623165 (Version 3)
Quarter: 2020Q2

REPORT INFORMATION
  Report Type: Report from Study
  Country: None (occurrence: US)
  Receive Date: 20200403
  Receipt Date: 20200629
  Transmission Date: 20200713
  Serious: No
  Sender: FDA-Public Use
  Company Number: US-BIOVITRUM-2020US1349

PATIENT
  Age: 19 Year
  Sex: Male

DRUGS (1)
  1. KINERET [Suspect]
     Active Substance: ANAKINRA
     Indication: PERICARDIAL DISEASE
     Route: 058
     Dates: start: 20200229

REACTIONS (11)
  - Acne [Unknown]
  - Injection site erythema [Unknown]
  - Chest pain [Unknown]
  - Pruritus [Unknown]
  - Dizziness [Unknown]
  - Fatigue [Unknown]
  - Injection site pruritus [Unknown]
  - Rash [Unknown]
  - Off label use [Unknown]
  - Injection site mass [Unknown]
  - Headache [Unknown]

NARRATIVE: CASE EVENT DATE: 20200229
